FAERS Safety Report 22249057 (Version 1)
Quarter: 2023Q2

REPORT INFORMATION
  Report Type: Other
  Country: ZA (occurrence: None)
  Receive Date: 20230425
  Receipt Date: 20230425
  Transmission Date: 20230721
  Serious: Yes (Other)
  Sender: FDA-Public Use
  Company Number: ZA-ROCHE-3330981

PATIENT
  Sex: Female

DRUGS (1)
  1. OCREVUS [Suspect]
     Active Substance: OCRELIZUMAB
     Indication: Multiple sclerosis
     Dosage: THERAFTER EVERY SIX MONTHS
     Route: 041

REACTIONS (8)
  - Demyelination [Unknown]
  - Cerebral atrophy [Unknown]
  - Dilatation ventricular [Unknown]
  - Cerebral disorder [Unknown]
  - Paranasal sinus mucosal hypertrophy [Unknown]
  - Eye disorder [Unknown]
  - Intervertebral disc protrusion [Unknown]
  - Multiple sclerosis [Unknown]
